FAERS Safety Report 24699148 (Version 1)
Quarter: 2024Q4

REPORT INFORMATION
  Report Type: Spontaneous
  Country: IT (occurrence: IT)
  Receive Date: 20241205
  Receipt Date: 20241205
  Transmission Date: 20250115
  Serious: Yes (Death)
  Sender: TEVA
  Company Number: None

PATIENT
  Age: 67 Year
  Sex: Male
  Weight: 66 kg

DRUGS (3)
  1. FLUOROURACIL [Suspect]
     Active Substance: FLUOROURACIL
     Indication: Metastases to liver
     Dosage: DOSE REDUCED BY 30% FOR HOMOZYGOUS DPD MUTATION: 495 MG IV BOLUS + 2973 I.C. 44 HOURS EVERY 14 DA...
     Route: 042
     Dates: start: 20240819, end: 20241112
  2. ELIQUIS [Concomitant]
     Active Substance: APIXABAN
     Indication: Pulmonary thrombosis
     Dosage: 5 MG X 2 /DAY
     Route: 048
     Dates: start: 20240418, end: 20241112
  3. OXALIPLATIN [Suspect]
     Active Substance: OXALIPLATIN
     Indication: Adenocarcinoma of colon
     Dosage: 100 MG/M2 G 1 EVERY 14 DAYS ASSOCIATED WITH 5FU
     Route: 042
     Dates: start: 20240820, end: 20241112

REACTIONS (1)
  - Cardiogenic shock [Fatal]

NARRATIVE: CASE EVENT DATE: 20241112
